FAERS Safety Report 12095348 (Version 1)
Quarter: 2016Q1

REPORT INFORMATION
  Report Type: Spontaneous
  Country: US (occurrence: US)
  Receive Date: 20160219
  Receipt Date: 20160219
  Transmission Date: 20160526
  Serious: Yes (Hospitalization, Other)
  Sender: FDA-Public Use
  Company Number: US-GLAXOSMITHKLINE-US2016024067

PATIENT
  Age: 70 Year
  Sex: Male

DRUGS (6)
  1. ADVAIR DISKUS [Suspect]
     Active Substance: FLUTICASONE PROPIONATE\SALMETEROL XINAFOATE
     Indication: PNEUMOCONIOSIS
  2. ASPIRIN (BABY) [Concomitant]
     Active Substance: ASPIRIN
  3. RANEXA [Concomitant]
     Active Substance: RANOLAZINE
  4. ADVAIR DISKUS [Suspect]
     Active Substance: FLUTICASONE PROPIONATE\SALMETEROL XINAFOATE
     Indication: ASTHMA
     Dosage: 250MCG/50MCG
     Route: 055
  5. ADVAIR DISKUS [Suspect]
     Active Substance: FLUTICASONE PROPIONATE\SALMETEROL XINAFOATE
     Indication: PNEUMOCONIOSIS
  6. DILTIAZEM [Concomitant]
     Active Substance: DILTIAZEM

REACTIONS (5)
  - Vascular graft [Recovered/Resolved]
  - Intentional product misuse [Unknown]
  - Wheezing [Unknown]
  - Underdose [Unknown]
  - Off label use [Unknown]

NARRATIVE: CASE EVENT DATE: 20130406
